FAERS Safety Report 12873095 (Version 1)
Quarter: 2016Q4

REPORT INFORMATION
  Report Type: Spontaneous
  Country: US (occurrence: US)
  Receive Date: 20161021
  Receipt Date: 20161021
  Transmission Date: 20170207
  Serious: No
  Sender: FDA-Public Use
  Company Number: US-GLENMARK PHARMACEUTICALS INC, USA.-2016GMK023925

PATIENT

DRUGS (2)
  1. DROSPIRENONE AND EE TABS, 3 MG/0.03 MG [Suspect]
     Active Substance: DROSPIRENONE\ETHINYL ESTRADIOL
     Indication: MENORRHAGIA
     Dosage: 1 DF, QD
     Route: 048
     Dates: start: 2016
  2. DROSPIRENONE AND EE TABS, 3 MG/0.03 MG [Suspect]
     Active Substance: DROSPIRENONE\ETHINYL ESTRADIOL
     Indication: DYSMENORRHOEA

REACTIONS (4)
  - Product use issue [Unknown]
  - Product substitution issue [Unknown]
  - Metrorrhagia [Unknown]
  - Incorrect dose administered [Unknown]

NARRATIVE: CASE EVENT DATE: 2016
